FAERS Safety Report 23183544 (Version 3)
Quarter: 2023Q4

REPORT INFORMATION
  Report Type: Spontaneous
  Country: US (occurrence: US)
  Receive Date: 20231114
  Receipt Date: 20231124
  Transmission Date: 20240110
  Serious: Yes (Other)
  Sender: FDA-Public Use
  Company Number: US-PFIZER INC-PV202300119919

PATIENT
  Age: 48 Year
  Sex: Female

DRUGS (2)
  1. BOSULIF [Suspect]
     Active Substance: BOSUTINIB MONOHYDRATE
     Indication: Chronic myeloid leukaemia
     Dosage: 400 MG, DAILY
  2. BOSULIF [Suspect]
     Active Substance: BOSUTINIB MONOHYDRATE
     Dosage: 400 MG, 1X/DAY (TAKE 4 TABLETS (400 MG TOTAL) BY MOUTH 1 (ONE) TIME EACH DAY. TAKE WITH FOOD. SWALLO
     Route: 048

REACTIONS (3)
  - COVID-19 [Unknown]
  - Illness [Unknown]
  - Product prescribing error [Unknown]
